FAERS Safety Report 23047055 (Version 1)
Quarter: 2023Q4

REPORT INFORMATION
  Report Type: Spontaneous
  Country: LK (occurrence: LK)
  Receive Date: 20231009
  Receipt Date: 20231009
  Transmission Date: 20240110
  Serious: Yes (Other)
  Sender: FDA-Public Use
  Company Number: LK-BEXIMCO-2023BEX00056

PATIENT
  Age: 72 Year
  Sex: Male

DRUGS (1)
  1. BACLOFEN [Suspect]
     Active Substance: BACLOFEN
     Indication: Pelvic pain
     Dosage: EXPOSED TO 20 MG (PRESCRIBED 10 MG, 3X/DAY)

REACTIONS (4)
  - Myoclonus [Recovered/Resolved]
  - Cerebral disorder [Recovered/Resolved]
  - Asterixis [Recovered/Resolved]
  - Toxicity to various agents [Recovered/Resolved]
